FAERS Safety Report 18273970 (Version 1)
Quarter: 2020Q3

REPORT INFORMATION
  Report Type: Spontaneous
  Country: GB (occurrence: US)
  Receive Date: 20200916
  Receipt Date: 20200916
  Transmission Date: 20201103
  Serious: No
  Sender: FDA-Public Use
  Company Number: GB-BAYER-2020-198651

PATIENT
  Sex: Female

DRUGS (1)
  1. QLAIRA FILM?COATED TABLETS [Suspect]
     Active Substance: DIENOGEST\ESTRADIOL VALERATE
     Indication: ENDOMETRIOSIS
     Dosage: UNK
     Route: 048

REACTIONS (2)
  - Drug effective for unapproved indication [None]
  - Product use in unapproved indication [None]
